FAERS Safety Report 7777100-1 (Version None)
Quarter: 2011Q3

REPORT INFORMATION
  Report Type: 
  Country: None (occurrence: None)
  Receive Date: 20110926
  Receipt Date: 20110916
  Transmission Date: 20111222
  Serious: Yes (Death, Hospitalization)
  Sender: FDA-Public Use
  Company Number: SE-BRISTOL-MYERS SQUIBB COMPANY-16064966

PATIENT
  Age: 59 Year
  Sex: Male

DRUGS (8)
  1. WARFARIN SODIUM [Concomitant]
     Dosage: TABS
  2. FLUCONAZOLE [Concomitant]
  3. LYRICA [Concomitant]
     Dosage: HARD CAPSULE
  4. AMIKACIN SULFATE [Suspect]
     Dates: start: 20110501, end: 20110530
  5. CLARITHROMYCIN [Suspect]
     Dosage: TABS
     Route: 048
     Dates: start: 20110519, end: 20110530
  6. COLCHICINE [Suspect]
     Indication: GOUT
     Dosage: TABS
     Route: 048
     Dates: start: 20110427, end: 20110530
  7. LEVOFLOXACIN [Suspect]
     Dates: start: 20110519, end: 20110530
  8. PREDNISOLONE [Concomitant]

REACTIONS (8)
  - DYSPNOEA [None]
  - DIARRHOEA [None]
  - BACK PAIN [None]
  - SEPSIS [None]
  - TACHYCARDIA [None]
  - CARDIAC ARREST [None]
  - PANCYTOPENIA [None]
  - HYPOTENSION [None]
